FAERS Safety Report 13313257 (Version 1)
Quarter: 2017Q1

REPORT INFORMATION
  Report Type: Spontaneous
  Country: EC (occurrence: EC)
  Receive Date: 20170309
  Receipt Date: 20170309
  Transmission Date: 20170428
  Serious: Yes (Hospitalization)
  Sender: FDA-Public Use
  Company Number: EC-BAYER-2017-044329

PATIENT
  Age: 9 Year
  Sex: Male

DRUGS (4)
  1. ACETYLSALICYLIC ACID({=100 MG) [Suspect]
     Active Substance: ASPIRIN
     Indication: TAKAYASU^S ARTERITIS
  2. PREDNISONE. [Concomitant]
     Active Substance: PREDNISONE
     Indication: TAKAYASU^S ARTERITIS
     Dosage: 2 MG/KG, QD
  3. ENALAPRIL [Concomitant]
     Active Substance: ENALAPRIL
     Indication: TAKAYASU^S ARTERITIS
  4. PREDNISONE. [Concomitant]
     Active Substance: PREDNISONE
     Indication: TAKAYASU^S ARTERITIS
     Dosage: 10 MG, QD

REACTIONS (3)
  - Aneurysm [None]
  - Off label use [None]
  - Cerebral haemorrhage [Unknown]
